FAERS Safety Report 8499769-9 (Version None)
Quarter: 2012Q3

REPORT INFORMATION
  Report Type: 
  Country: None (occurrence: None)
  Receive Date: 20120710
  Receipt Date: 20120702
  Transmission Date: 20120928
  Serious: Yes (Hospitalization, Other)
  Sender: FDA-Public Use
  Company Number: US-ASTRAZENECA-2012SE37127

PATIENT
  Age: 84 Year
  Sex: Female

DRUGS (4)
  1. NEXIUM [Suspect]
     Route: 048
  2. ANTIBIOTICS [Concomitant]
  3. BLOOD THINNER [Concomitant]
  4. NEXIUM [Suspect]
     Dosage: GENERIC
     Route: 048

REACTIONS (6)
  - DYSPHONIA [None]
  - NASOPHARYNGITIS [None]
  - REGURGITATION [None]
  - PNEUMONIA [None]
  - LUNG DISORDER [None]
  - DRUG DOSE OMISSION [None]
